FAERS Safety Report 19363591 (Version 2)
Quarter: 2021Q2

REPORT INFORMATION
  Report Type: Spontaneous
  Country: FR (occurrence: FR)
  Receive Date: 20210602
  Receipt Date: 20210609
  Transmission Date: 20210717
  Serious: Yes (Other)
  Sender: FDA-Public Use
  Company Number: FR-PFIZER INC-2021589727

PATIENT
  Age: 62 Year
  Sex: Female

DRUGS (13)
  1. OXAZEPAM. [Suspect]
     Active Substance: OXAZEPAM
     Dosage: 40 MG, 1X/DAY
     Route: 048
     Dates: start: 20210214, end: 20210215
  2. ALPRAZOLAM. [Concomitant]
     Active Substance: ALPRAZOLAM
     Dosage: 1.5 MG, 1X/DAY
     Route: 048
     Dates: start: 20210125
  3. PARACETAMOL [Concomitant]
     Active Substance: ACETAMINOPHEN
     Dosage: 1 G, CYCLIC
     Route: 048
     Dates: start: 20201210
  4. CLINDAMYCIN. [Concomitant]
     Active Substance: CLINDAMYCIN
     Dosage: 1800 MG, 1X/DAY
     Route: 048
     Dates: start: 20210204
  5. LANSOPRAZOLE. [Suspect]
     Active Substance: LANSOPRAZOLE
     Indication: GASTROOESOPHAGEAL REFLUX DISEASE
     Dosage: 15 MG, 1X/DAY
     Route: 048
     Dates: start: 20201231, end: 20210223
  6. SPASFON [PHLOROGLUCINOL] [Concomitant]
     Active Substance: PHLOROGLUCINOL
     Dosage: 160 MG, 1X/DAY
     Route: 048
     Dates: start: 20210103, end: 20210301
  7. MEDROL [Suspect]
     Active Substance: METHYLPREDNISOLONE
     Dosage: 8 MG, 1X/DAY
     Route: 048
     Dates: start: 20210212, end: 20210215
  8. OFLOXACINE [Concomitant]
     Active Substance: OFLOXACIN
     Dosage: 1200 MG, 1X/DAY
     Route: 048
     Dates: start: 20210202
  9. MORPHINE [Concomitant]
     Active Substance: MORPHINE
     Dosage: 5 MG, 1X/DAY
     Route: 048
     Dates: start: 20201213
  10. DALTEPARINE SODIQUE [Suspect]
     Active Substance: DALTEPARIN SODIUM
     Indication: PROPHYLAXIS
     Dosage: 50000 IU, 1X/DAY
     Route: 058
     Dates: start: 20210114, end: 20210223
  11. ONDANSETRON [Concomitant]
     Active Substance: ONDANSETRON
     Dosage: 4 MG, 1X/DAY
     Route: 048
     Dates: start: 20210105, end: 20210301
  12. MIRTAZAP [Concomitant]
     Dosage: 15 MG, 1X/DAY
     Route: 048
     Dates: start: 20210211
  13. ACIDE FOLIQUE [Concomitant]
     Active Substance: FOLIC ACID
     Dosage: 10 MG, 1X/DAY
     Route: 048
     Dates: start: 20210213, end: 20210308

REACTIONS (1)
  - Thrombocytopenia [Recovered/Resolved]

NARRATIVE: CASE EVENT DATE: 20210220
